FAERS Safety Report 20091912 (Version 1)
Quarter: 2021Q4

REPORT INFORMATION
  Report Type: Spontaneous
  Country: US (occurrence: None)
  Receive Date: 20211119
  Receipt Date: 20211119
  Transmission Date: 20220303
  Serious: Yes (Hospitalization)
  Sender: FDA-Public Use
  Company Number: None

PATIENT
  Age: 71 Year
  Sex: Female
  Weight: 71 kg

DRUGS (6)
  1. TAGRISSO [Suspect]
     Active Substance: OSIMERTINIB
     Indication: Lung carcinoma cell type unspecified stage 0
     Dosage: FREQUENCY : DAILY;?
     Route: 048
     Dates: start: 20190521
  2. METOPROLOL SUCCINATE [Concomitant]
     Active Substance: METOPROLOL SUCCINATE
  3. ATORVASTATIN [Concomitant]
     Active Substance: ATORVASTATIN
  4. ELIQUIS [Concomitant]
     Active Substance: APIXABAN
  5. MYRBETRIQ [Concomitant]
     Active Substance: MIRABEGRON
  6. LEVOTHYROXINE [Concomitant]
     Active Substance: LEVOTHYROXINE

REACTIONS (8)
  - Sepsis [None]
  - Cellulitis [None]
  - Abscess [None]
  - Erythema [None]
  - Swelling [None]
  - Pain [None]
  - Culture wound positive [None]
  - Wound infection staphylococcal [None]

NARRATIVE: CASE EVENT DATE: 20211105
